FAERS Safety Report 10420163 (Version 1)
Quarter: 2014Q3

REPORT INFORMATION
  Report Type: Report from Study
  Country: US (occurrence: None)
  Receive Date: 20140804
  Receipt Date: 20140804
  Transmission Date: 20150326
  Serious: Yes (Disabling)
  Sender: FDA-Public Use
  Company Number: 2012US006315

PATIENT
  Age: 56 Year
  Sex: Female
  Weight: 72.6 kg

DRUGS (19)
  1. CALCIUM GLUCONATE (CALCIUM GLUCONATE) [Concomitant]
     Active Substance: CALCIUM GLUCONATE
  2. LEVALBUTEROL (LEVOSALBUTAMOL) [Concomitant]
  3. XOPENEX (LEVOSALBUTAMOL HYDROCHLORIDE) [Concomitant]
  4. C-PAP ((C-PAP) [Concomitant]
  5. SPIRIVA [Concomitant]
     Active Substance: TIOTROPIUM BROMIDE MONOHYDRATE
  6. SUMBICORT (BUDESONIDE, FORMOTEROL FUMARATE) [Concomitant]
  7. VITAMIN D3 [Concomitant]
     Active Substance: CHOLECALCIFEROL
  8. PANTOPRAZOLE (PANTOPRAZOLE) [Concomitant]
     Active Substance: PANTOPRAZOLE SODIUM
  9. DALIRESP (ROFLUMILAST) [Concomitant]
     Active Substance: ROFLUMILAST
  10. GLASSIA [Suspect]
     Active Substance: .ALPHA.1-PROTEINASE INHIBITOR HUMAN
     Indication: ALPHA-1 ANTI-TRYPSIN DEFICIENCY
     Route: 042
     Dates: start: 20120404
  11. DULERA (FORMOTEROL FUMARATE, MOMETASONE FUROATE) [Concomitant]
  12. REQUIP [Concomitant]
     Active Substance: ROPINIROLE HYDROCHLORIDE
  13. EPGOCALCIFEROL (EPGOCALCIFEROL) [Concomitant]
  14. GLIPIZIDE ER (GLIPIZIDE) [Concomitant]
  15. CELEBREX (CELEBREX) [Concomitant]
  16. PROAIR HFA [Concomitant]
     Active Substance: ALBUTEROL SULFATE
  17. TUSSIONEX PENNKINETIC (CHLORPHENAMINE, HYDROCHLORIDE) [Concomitant]
  18. PREDNISONE (PREDNISONE) [Concomitant]
     Active Substance: PREDNISONE
  19. AMBIEN [Concomitant]
     Active Substance: ZOLPIDEM TARTRATE

REACTIONS (22)
  - Abdominal pain upper [None]
  - Joint effusion [None]
  - Wheezing [None]
  - Diarrhoea [None]
  - Dyspnoea [None]
  - Joint warmth [None]
  - Ear infection [None]
  - Sinusitis [None]
  - Muscle spasms [None]
  - Arthritis infective [None]
  - Viral infection [None]
  - Deafness unilateral [None]
  - Headache [None]
  - Hypertension [None]
  - Asthma [None]
  - Arthralgia [None]
  - Joint swelling [None]
  - Cough [None]
  - Meningioma [None]
  - Productive cough [None]
  - Infusion related reaction [None]
  - Hyperlipidaemia [None]

NARRATIVE: CASE EVENT DATE: 20120404
